FAERS Safety Report 9691994 (Version 2)
Quarter: 2014Q4

REPORT INFORMATION
  Report Type: Report from Study
  Country: BR (occurrence: BR)
  Receive Date: 20131118
  Receipt Date: 20141208
  Transmission Date: 20150529
  Serious: Yes (Hospitalization, Disabling, Other)
  Sender: FDA-Public Use
  Company Number: BR-BIOGENIDEC-2013BI108816

PATIENT
  Age: 44 Year
  Sex: Female

DRUGS (16)
  1. PROSSO (NOS) [Concomitant]
  2. TRAMADOL [Concomitant]
     Active Substance: TRAMADOL
  3. SODIUM ALENDRONATE [Concomitant]
  4. SIMETHICONE [Concomitant]
     Active Substance: DIMETHICONE\SILICON DIOXIDE\SIMETHICONE
  5. DIPYRONE [Concomitant]
     Active Substance: DIPYRONE
  6. VITAMIN D [Concomitant]
     Active Substance: CHOLECALCIFEROL
  7. TYSABRI [Suspect]
     Active Substance: NATALIZUMAB
     Indication: MULTIPLE SCLEROSIS
     Route: 042
     Dates: start: 20120613
  8. VITAMIN A [Concomitant]
     Active Substance: VITAMIN A
  9. RIVOTRIL [Concomitant]
     Active Substance: CLONAZEPAM
     Indication: GENERAL SYMPTOM
  10. IRON SULPHATE [Concomitant]
  11. PARACETAMOL [Concomitant]
     Active Substance: ACETAMINOPHEN
  12. SETRALINE [Concomitant]
  13. BACLOFEN. [Concomitant]
     Active Substance: BACLOFEN
  14. REDVIT [Concomitant]
  15. OMEPRAZOLE. [Concomitant]
     Active Substance: OMEPRAZOLE
  16. ENOXAPARIN [Concomitant]
     Active Substance: ENOXAPARIN

REACTIONS (11)
  - Anaemia [Unknown]
  - Bone prosthesis insertion [Not Recovered/Not Resolved]
  - Femur fracture [Unknown]
  - General symptom [Unknown]
  - Balance disorder [Unknown]
  - Fall [Recovered/Resolved]
  - Head injury [Unknown]
  - Memory impairment [Unknown]
  - Patient-device incompatibility [Not Recovered/Not Resolved]
  - Urinary tract infection [Recovered/Resolved]
  - Confusional state [Unknown]

NARRATIVE: CASE EVENT DATE: 2013
